FAERS Safety Report 12407198 (Version 1)
Quarter: 2016Q2

REPORT INFORMATION
  Report Type: Spontaneous
  Country: US (occurrence: US)
  Receive Date: 20160526
  Receipt Date: 20160526
  Transmission Date: 20160815
  Serious: Yes (Death, Hospitalization)
  Sender: FDA-Public Use
  Company Number: US-BAXTER-2016BAX027231

PATIENT
  Age: 73 Year
  Sex: Male

DRUGS (5)
  1. VFEND [Suspect]
     Active Substance: VORICONAZOLE
     Indication: PNEUMONIA FUNGAL
     Route: 065
     Dates: start: 201507
  2. FLUCONAZOLE INJECTION, USP [Suspect]
     Active Substance: FLUCONAZOLE
     Indication: ACUTE MYELOID LEUKAEMIA
     Route: 065
  3. LEVOFLOXACIN. [Suspect]
     Active Substance: LEVOFLOXACIN
     Indication: NEUTROPENIA
     Route: 065
  4. ACYCLOVIR. [Suspect]
     Active Substance: ACYCLOVIR
     Indication: NEUTROPENIA
     Route: 065
  5. FLUCONAZOLE INJECTION, USP [Suspect]
     Active Substance: FLUCONAZOLE
     Indication: OFF LABEL USE

REACTIONS (4)
  - Cerebrovascular accident [Unknown]
  - Death [Fatal]
  - Pneumonia [Unknown]
  - Oncologic complication [Unknown]

NARRATIVE: CASE EVENT DATE: 20160318
